FAERS Safety Report 6604571-6 (Version None)
Quarter: 2010Q1

REPORT INFORMATION
  Report Type: 
  Country: None (occurrence: None)
  Receive Date: 20100226
  Receipt Date: 20091221
  Transmission Date: 20100710
  Serious: No
  Sender: FDA-Public Use
  Company Number: A0833186A

PATIENT
  Age: 56 Year
  Sex: Female

DRUGS (2)
  1. LAMOTRIGINE [Suspect]
     Indication: TRIGEMINAL NEURALGIA
     Dosage: 200MG TWICE PER DAY
     Route: 048
     Dates: start: 20090701
  2. LYRICA [Concomitant]

REACTIONS (1)
  - DRUG INEFFECTIVE [None]
